FAERS Safety Report 7073626-7 (Version None)
Quarter: 2010Q4

REPORT INFORMATION
  Report Type: 
  Country: None (occurrence: None)
  Receive Date: 20101029
  Receipt Date: 20101005
  Transmission Date: 20110411
  Serious: No
  Sender: FDA-Public Use
  Company Number: A0871676A

PATIENT
  Sex: Female

DRUGS (7)
  1. ADVAIR DISKUS 100/50 [Suspect]
     Indication: ASTHMA
     Dosage: 2PUFF PER DAY
     Route: 055
     Dates: start: 20090901
  2. WELLBUTRIN [Concomitant]
  3. LIPITOR [Concomitant]
  4. DICODID [Concomitant]
  5. MULTI-VITAMIN [Concomitant]
  6. ZYRTEC [Concomitant]
  7. ALLERGY SHOT [Concomitant]

REACTIONS (5)
  - CHEST DISCOMFORT [None]
  - COUGH [None]
  - DYSPHONIA [None]
  - GINGIVAL PAIN [None]
  - WHEEZING [None]
